FAERS Safety Report 8881781 (Version 1)
Quarter: 2012Q4

REPORT INFORMATION
  Report Type: 
  Country: US (occurrence: US)
  Receive Date: 20121101
  Receipt Date: 20121101
  Transmission Date: 20130627
  Serious: No
  Sender: FDA-Public Use
  Company Number: US-PFIZER INC-2012269490

PATIENT
  Age: 44 Year
  Sex: Female
  Weight: 80.7 kg

DRUGS (3)
  1. CELEBREX [Suspect]
     Indication: PULLED MUSCLE
     Dosage: 200 mg, 2x/day
     Dates: start: 2011, end: 2011
  2. DEXLANSOPRAZOLE [Concomitant]
     Indication: ACID REFLUX (ESOPHAGEAL)
     Dosage: 60 mg, as needed
  3. LEXAPRO [Concomitant]
     Indication: ANXIETY
     Dosage: 10 mg, daily

REACTIONS (3)
  - Back pain [Unknown]
  - Pain in extremity [Unknown]
  - Sensation of heaviness [Unknown]
